FAERS Safety Report 20650157 (Version 1)
Quarter: 2022Q1

REPORT INFORMATION
  Report Type: Spontaneous
  Country: US (occurrence: US)
  Receive Date: 20220329
  Receipt Date: 20220329
  Transmission Date: 20220424
  Serious: No
  Sender: FDA-Public Use
  Company Number: US-AVEO ONCOLOGY-2022-AVEO-US000015

PATIENT

DRUGS (10)
  1. FOTIVDA [Suspect]
     Active Substance: TIVOZANIB HYDROCHLORIDE
     Indication: Renal cell carcinoma
     Dosage: 0.89 MG, DAILY FOR 21 DAYS, THEN OFF 7 DAYS
     Route: 048
     Dates: start: 20220109, end: 20220215
  2. ALLOPURINOL [Concomitant]
     Active Substance: ALLOPURINOL
  3. ALBUTEROL SULFATE [Concomitant]
     Active Substance: ALBUTEROL SULFATE
  4. ELIQUIS [Concomitant]
     Active Substance: APIXABAN
  5. GLIPIZIDE [Concomitant]
     Active Substance: GLIPIZIDE
  6. MUCINEX [Concomitant]
     Active Substance: GUAIFENESIN
  7. PREDNISONE [Concomitant]
     Active Substance: PREDNISONE
  8. PROTONIX [Concomitant]
     Active Substance: PANTOPRAZOLE SODIUM
  9. TAMSULOSIN [Concomitant]
     Active Substance: TAMSULOSIN
  10. FENTANYL [Concomitant]
     Active Substance: FENTANYL
     Dosage: UNK
     Dates: start: 20220104

REACTIONS (6)
  - Fatigue [Unknown]
  - Abdominal pain upper [Unknown]
  - Arthralgia [Unknown]
  - Drug ineffective [Unknown]
  - Disease progression [Unknown]
  - Pneumonia [Unknown]

NARRATIVE: CASE EVENT DATE: 20220201
